FAERS Safety Report 17118872 (Version 1)
Quarter: 2019Q4

REPORT INFORMATION
  Report Type: Report from Study
  Country: US (occurrence: US)
  Receive Date: 20191206
  Receipt Date: 20191206
  Transmission Date: 20200122
  Serious: Yes (Other)
  Sender: FDA-Public Use
  Company Number: US-ROCHE-2479889

PATIENT

DRUGS (6)
  1. PEMETREXED. [Suspect]
     Active Substance: PEMETREXED
     Indication: NON-SMALL CELL LUNG CANCER
     Dosage: OVER 10 MINUTES ON DAY 1 OF EACH CYCLE
     Route: 042
  2. BEVACIZUMAB. [Suspect]
     Active Substance: BEVACIZUMAB
     Indication: NON-SMALL CELL LUNG CANCER
     Dosage: OVER 30-90 MINUTES, ON DAY 1 OF EACH CYCLE
     Route: 042
  3. CARBOPLATIN. [Suspect]
     Active Substance: CARBOPLATIN
     Indication: NON-SMALL CELL LUNG CANCER
     Dosage: AUC=6 MG/ML, OVER 15-30 MINUTES, ON DAY 1 OF EACH CYCLE
     Route: 042
  4. PACLITAXEL. [Suspect]
     Active Substance: PACLITAXEL
     Indication: NON-SMALL CELL LUNG CANCER
     Dosage: OVER 3 HOURS, ON DAY 1 OF EACH CYCLE
     Route: 042
  5. DEXAMETHASONE. [Concomitant]
     Active Substance: DEXAMETHASONE
     Route: 065
  6. DIPHENHYDRAMINE. [Concomitant]
     Active Substance: DIPHENHYDRAMINE
     Dosage: LESS THAN 0NE HOUR PRIOR TO PACLITAXEL INFUSION
     Route: 042

REACTIONS (42)
  - Pulmonary oedema [Unknown]
  - Hypotension [Unknown]
  - Alopecia [Unknown]
  - Lymph gland infection [Unknown]
  - Pneumothorax [Unknown]
  - Haematuria [Unknown]
  - Bronchopleural fistula [Unknown]
  - Neoplasm [Unknown]
  - Depression [Unknown]
  - Insomnia [Unknown]
  - Aspiration [Unknown]
  - Hypertension [Unknown]
  - Influenza like illness [Unknown]
  - Paraesthesia [Unknown]
  - Proteinuria [Unknown]
  - Cough [Unknown]
  - Epistaxis [Unknown]
  - Pleural effusion [Unknown]
  - Pneumonitis [Unknown]
  - Oropharyngeal pain [Unknown]
  - Gastric ulcer [Unknown]
  - Pancreatitis [Unknown]
  - Proctitis [Unknown]
  - Peripheral ischaemia [Unknown]
  - Osteonecrosis [Unknown]
  - Delirium [Unknown]
  - Haemothorax [Unknown]
  - Intestinal ischaemia [Unknown]
  - Abdominal pain upper [Unknown]
  - Neuralgia [Unknown]
  - Hallucination [Unknown]
  - Pulmonary hypertension [Unknown]
  - International normalised ratio increased [Unknown]
  - Ataxia [Unknown]
  - Confusional state [Unknown]
  - Menstruation irregular [Unknown]
  - Hypoxia [Unknown]
  - Respiratory failure [Unknown]
  - Embolism [Unknown]
  - Wound dehiscence [Unknown]
  - Hypermagnesaemia [Unknown]
  - Flank pain [Unknown]
